FAERS Safety Report 15586141 (Version 1)
Quarter: 2018Q4

REPORT INFORMATION
  Report Type: Spontaneous
  Country: US (occurrence: US)
  Receive Date: 20181105
  Receipt Date: 20181105
  Transmission Date: 20190205
  Serious: No
  Sender: FDA-Public Use
  Company Number: US-ABBVIE-18K-163-2509198-00

PATIENT

DRUGS (4)
  1. MAVYRET [Suspect]
     Active Substance: GLECAPREVIR\PIBRENTASVIR
     Indication: HEPATITIS C
     Route: 048
  2. PROTONIX [Concomitant]
     Active Substance: PANTOPRAZOLE SODIUM
     Indication: PRODUCT USED FOR UNKNOWN INDICATION
  3. NEXIUM [Concomitant]
     Active Substance: ESOMEPRAZOLE MAGNESIUM
  4. NEXIUM [Concomitant]
     Active Substance: ESOMEPRAZOLE MAGNESIUM
     Indication: PRODUCT USED FOR UNKNOWN INDICATION

REACTIONS (1)
  - Gastric disorder [Unknown]
